FAERS Safety Report 12249612 (Version 1)
Quarter: 2016Q2

REPORT INFORMATION
  Report Type: Spontaneous
  Country: US (occurrence: US)
  Receive Date: 20160408
  Receipt Date: 20160408
  Transmission Date: 20160815
  Serious: No
  Sender: FDA-Public Use
  Company Number: US-TARO-2015TAR00895

PATIENT
  Sex: Female

DRUGS (1)
  1. ETODOLAC TABLETS 500 MG [Suspect]
     Active Substance: ETODOLAC
     Indication: INFLAMMATION
     Dosage: 500 MG, 3X/DAY
     Route: 048

REACTIONS (2)
  - Product substitution issue [Not Recovered/Not Resolved]
  - Drug ineffective [Not Recovered/Not Resolved]
